FAERS Safety Report 10230511 (Version 1)
Quarter: 2014Q2

REPORT INFORMATION
  Report Type: Spontaneous
  Country: US (occurrence: US)
  Receive Date: 20140611
  Receipt Date: 20140611
  Transmission Date: 20141212
  Serious: Yes (Other)
  Sender: FDA-Public Use
  Company Number: US-INCYTE CORPORATION-2014IN001002

PATIENT
  Age: 82 Year
  Sex: Female

DRUGS (10)
  1. JAKAFI [Suspect]
     Dosage: 20 MG, BID
     Route: 048
     Dates: start: 20140310
  2. KLOR-CON M10 [Concomitant]
  3. AMLODIPINE BESYLATE [Concomitant]
  4. LORAZEPAM [Concomitant]
  5. HYDROCODONE BITARTRATE AND ACETAMINOPHEN [Concomitant]
  6. FUROSEMIDE [Concomitant]
  7. PENTOXIFYLLINE [Concomitant]
  8. LUMIGAN [Concomitant]
  9. SERTRALINE [Concomitant]
  10. METOPROLOL TARTRATE [Concomitant]

REACTIONS (2)
  - Platelet count decreased [Unknown]
  - White blood cell count decreased [Unknown]
